FAERS Safety Report 16668353 (Version 1)
Quarter: 2019Q3

REPORT INFORMATION
  Report Type: Spontaneous
  Country: AT (occurrence: AT)
  Receive Date: 20190805
  Receipt Date: 20190805
  Transmission Date: 20191004
  Serious: Yes (Other)
  Sender: FDA-Public Use
  Company Number: AT-009507513-1908AUS000155

PATIENT
  Age: 82 Year
  Sex: Female

DRUGS (1)
  1. KEYTRUDA [Suspect]
     Active Substance: PEMBROLIZUMAB
     Indication: NON-SMALL CELL LUNG CANCER
     Dosage: UNK, CYCLICAL
     Dates: start: 2017, end: 201901

REACTIONS (3)
  - Malignant neoplasm progression [Unknown]
  - Rash generalised [Unknown]
  - Breast cancer [Unknown]

NARRATIVE: CASE EVENT DATE: 201712
